FAERS Safety Report 6845590-4 (Version None)
Quarter: 2010Q3

REPORT INFORMATION
  Report Type: 
  Country: None (occurrence: None)
  Receive Date: 20100715
  Receipt Date: 20070821
  Transmission Date: 20110219
  Serious: No
  Sender: FDA-Public Use
  Company Number: US-PFIZER INC-2007071514

PATIENT
  Sex: Male
  Weight: 78.6 kg

DRUGS (2)
  1. CHANTIX [Suspect]
     Indication: SMOKING CESSATION THERAPY
     Dates: start: 20070813
  2. ADVIL LIQUI-GELS [Concomitant]

REACTIONS (3)
  - DISORIENTATION [None]
  - FATIGUE [None]
  - HEADACHE [None]
